FAERS Safety Report 8111801-0 (Version None)
Quarter: 2012Q1

REPORT INFORMATION
  Report Type: 
  Country: None (occurrence: None)
  Receive Date: 20120203
  Receipt Date: 20120126
  Transmission Date: 20120608
  Serious: Yes (Hospitalization)
  Sender: FDA-Public Use
  Company Number: NL-MEDIMMUNE-MEDI-0014339

PATIENT
  Sex: Male
  Weight: 6.14 kg

DRUGS (4)
  1. DIGOXIN [Concomitant]
  2. SYNAGIS [Suspect]
     Indication: PREMATURE BABY
     Route: 030
     Dates: start: 20110907, end: 20110907
  3. PROPRANOLOL [Concomitant]
  4. SYNAGIS [Suspect]
     Route: 030
     Dates: start: 20111005, end: 20111227

REACTIONS (6)
  - INCREASED BRONCHIAL SECRETION [None]
  - CRYING [None]
  - COUGH [None]
  - PYREXIA [None]
  - DYSPNOEA [None]
  - NASOPHARYNGITIS [None]
